FAERS Safety Report 8989023 (Version 2)
Quarter: 2013Q1

REPORT INFORMATION
  Report Type: Spontaneous
  Country: US (occurrence: US)
  Receive Date: 20121228
  Receipt Date: 20130122
  Transmission Date: 20140127
  Serious: Yes (Hospitalization)
  Sender: FDA-Public Use
  Company Number: US-US-EMD SERONO, INC.-7183444

PATIENT
  Age: 50 Year
  Sex: Female

DRUGS (2)
  1. REBIF [Suspect]
     Indication: MULTIPLE SCLEROSIS
     Route: 058
     Dates: start: 20071226
  2. REBIF [Suspect]
     Route: 058
     Dates: start: 20120806

REACTIONS (2)
  - Staphylococcal sepsis [Recovered/Resolved]
  - Cystitis klebsiella [Recovered/Resolved]
